FAERS Safety Report 16757240 (Version 1)
Quarter: 2019Q3

REPORT INFORMATION
  Report Type: Spontaneous
  Country: GB (occurrence: GB)
  Receive Date: 20190829
  Receipt Date: 20190829
  Transmission Date: 20191005
  Serious: Yes (Other)
  Sender: FDA-Public Use
  Company Number: GB-TEVA-2019-GB-1098803

PATIENT
  Age: 45 Year
  Sex: Female
  Weight: 37 kg

DRUGS (9)
  1. AMIODARONE [Interacting]
     Active Substance: AMIODARONE
     Dosage: 900MG/24H
     Route: 042
     Dates: start: 20190708, end: 20190711
  2. AMIODARONE [Interacting]
     Active Substance: AMIODARONE
     Route: 048
     Dates: start: 20190716
  3. DALTEPARIN [Concomitant]
     Active Substance: DALTEPARIN
  4. ZONISAMIDE. [Concomitant]
     Active Substance: ZONISAMIDE
  5. BISOPROLOL [Concomitant]
     Active Substance: BISOPROLOL
  6. AMIODARONE [Suspect]
     Active Substance: AMIODARONE
     Indication: VENTRICULAR ARRHYTHMIA
     Dosage: 1200 MILLIGRAM
     Route: 048
     Dates: start: 20190712, end: 20190715
  7. CARBAMAZEPINE. [Interacting]
     Active Substance: CARBAMAZEPINE
     Route: 065
  8. LANSOPRAZOLE. [Concomitant]
     Active Substance: LANSOPRAZOLE
  9. LEVETIRACETAM. [Concomitant]
     Active Substance: LEVETIRACETAM

REACTIONS (2)
  - Drug interaction [Unknown]
  - Toxicity to various agents [Recovered/Resolved]

NARRATIVE: CASE EVENT DATE: 20190713
